FAERS Safety Report 21316064 (Version 1)
Quarter: 2022Q3

REPORT INFORMATION
  Report Type: Spontaneous
  Country: CN (occurrence: CN)
  Receive Date: 20220910
  Receipt Date: 20220910
  Transmission Date: 20221027
  Serious: Yes (Hospitalization)
  Sender: FDA-Public Use
  Company Number: CN-BAYER-2022A126299

PATIENT
  Age: 78 Year
  Sex: Female

DRUGS (4)
  1. XARELTO [Suspect]
     Active Substance: RIVAROXABAN
     Indication: Anticoagulant therapy
     Dosage: 10 MG, QD
     Route: 048
     Dates: start: 20220810, end: 20220822
  2. XARELTO [Suspect]
     Active Substance: RIVAROXABAN
     Indication: Venous thrombosis limb
  3. FIBRINOLYSIN [Concomitant]
     Active Substance: FIBRINOLYSIN
     Indication: Symptomatic treatment
     Dosage: 100 U, QD
     Route: 041
     Dates: start: 20220817, end: 20220822
  4. IMRECOXIB [Concomitant]
     Active Substance: IMRECOXIB
     Indication: Symptomatic treatment
     Dosage: 0.1 G, BID
     Route: 048
     Dates: start: 20220817, end: 20220822

REACTIONS (9)
  - Upper gastrointestinal haemorrhage [Recovering/Resolving]
  - Nausea [Recovering/Resolving]
  - Gastric haemorrhage [Recovering/Resolving]
  - Haematemesis [Recovering/Resolving]
  - Haematochezia [Recovering/Resolving]
  - Prescribed underdose [Unknown]
  - Underdose [Unknown]
  - Inappropriate schedule of product administration [Unknown]
  - Product prescribing issue [Unknown]

NARRATIVE: CASE EVENT DATE: 20220810
